FAERS Safety Report 6756371-4 (Version None)
Quarter: 2010Q2

REPORT INFORMATION
  Report Type: 
  Country: None (occurrence: None)
  Receive Date: 20100604
  Receipt Date: 20100531
  Transmission Date: 20101027
  Serious: Yes (Death, Hospitalization)
  Sender: FDA-Public Use
  Company Number: SE-BAYER-201016786GPV

PATIENT
  Age: 72 Year
  Sex: Female
  Weight: 54 kg

DRUGS (5)
  1. NEXAVAR [Suspect]
     Indication: HEPATIC NEOPLASM MALIGNANT
     Route: 048
     Dates: start: 20091014, end: 20091021
  2. NEXAVAR [Suspect]
     Route: 048
     Dates: start: 20091126, end: 20100104
  3. NEXAVAR [Suspect]
     Route: 048
     Dates: start: 20100105, end: 20100209
  4. SIMVASTATIN [Concomitant]
     Dosage: VB
     Dates: start: 20060101
  5. KALE [Concomitant]

REACTIONS (2)
  - DEATH [None]
  - DECREASED APPETITE [None]
